FAERS Safety Report 8068808-1 (Version None)
Quarter: 2012Q1

REPORT INFORMATION
  Report Type: 
  Country: None (occurrence: None)
  Receive Date: 20120125
  Receipt Date: 20120112
  Transmission Date: 20120608
  Serious: Yes (Hospitalization)
  Sender: FDA-Public Use
  Company Number: DE-RANBAXY-2009RR-22416

PATIENT
  Age: 71 Year
  Sex: Female
  Weight: 85 kg

DRUGS (16)
  1. BISOPROLOL [Suspect]
     Dosage: 10 MG, QD
     Route: 048
     Dates: start: 20080801
  2. GLYBURIDE [Concomitant]
     Indication: TYPE 2 DIABETES MELLITUS
     Dosage: 1 MG, BID
     Route: 048
     Dates: start: 19920101
  3. RAMIPRIL [Concomitant]
     Indication: HYPERTENSION
     Dosage: 2.5 MG, BID
     Route: 048
     Dates: start: 20080901
  4. RAMIPRIL [Concomitant]
     Dosage: 2.5 MG, QD
     Route: 048
  5. AMLODIPINE [Suspect]
     Dosage: 10 MG, QD
     Route: 048
     Dates: start: 20000101
  6. HYDROCHLOROTHIAZIDE [Concomitant]
     Dosage: 12.5 MG, UNK
     Route: 048
  7. ACETYLSALICYLSAEURE [Concomitant]
     Indication: MYOCARDIAL INFARCTION
     Dosage: 100 MG, QD
     Route: 048
     Dates: start: 20080922
  8. DOXEPIN HCL [Concomitant]
     Indication: DEPRESSION
     Dosage: 20 MG, BID
     Route: 048
     Dates: start: 20080901
  9. BISOPROLOL [Concomitant]
     Dosage: 5 MG, UNK
     Route: 065
     Dates: start: 20081005
  10. HYDROCHLOROTHIAZIDE [Concomitant]
     Indication: HYPERTENSION
     Dosage: 25 MG, QD
     Route: 048
     Dates: start: 20000101
  11. AMLODIPINE [Suspect]
     Dosage: 5 MG, UNK
  12. PANTOPRAZOLE [Concomitant]
     Indication: DUODENAL ULCER
     Dosage: 40 MG, QD
     Route: 048
     Dates: start: 20080922
  13. BISOPROLOL [Suspect]
     Indication: HYPERTENSION
     Dosage: 20 MG, UNK
     Route: 065
     Dates: start: 20000101, end: 20080801
  14. PLAVIX [Concomitant]
     Indication: MYOCARDIAL INFARCTION
     Dosage: 75 MG, QD
     Route: 048
     Dates: start: 20080922
  15. SIMVASTATIN [Concomitant]
     Indication: HYPERLIPIDAEMIA
     Dosage: 40 MG, QD
     Route: 048
     Dates: start: 20080830
  16. ASPIRIN [Suspect]

REACTIONS (2)
  - BRADYCARDIA [None]
  - DRUG INTERACTION [None]
